FAERS Safety Report 18338770 (Version 2)
Quarter: 2020Q4

REPORT INFORMATION
  Report Type: Spontaneous
  Country: ES (occurrence: ES)
  Receive Date: 20201002
  Receipt Date: 20201015
  Transmission Date: 20210113
  Serious: Yes (Other)
  Sender: FDA-Public Use
  Company Number: ES-MYLANLABS-2020M1082758

PATIENT
  Age: 35 Year
  Sex: Female

DRUGS (5)
  1. EMTRICITABINE [Concomitant]
     Active Substance: EMTRICITABINE
     Indication: HIV INFECTION
     Dosage: UNK, ANTIRETROVIRAL TREATMENT; LONG-TERM CART
  2. DESOGESTREL [Interacting]
     Active Substance: DESOGESTREL
     Indication: CONTRACEPTION
     Dosage: 75 MICROGRAM, EVERY 24 HOURS (QD)
     Route: 048
     Dates: start: 20191201, end: 20200201
  3. TENOFOVIR DISOPROXIL FUMARATE. [Concomitant]
     Active Substance: TENOFOVIR DISOPROXIL FUMARATE
     Indication: HIV INFECTION
     Dosage: UNK, ANTIRETROVIRAL TREATMENT; LONG-TERM CART
  4. SUAVURET [Suspect]
     Active Substance: DESOGESTREL\ETHINYL ESTRADIOL
     Indication: CONTRACEPTION
     Dosage: UNK
     Route: 048
     Dates: start: 20191201, end: 20200201
  5. NEVIRAPINE. [Suspect]
     Active Substance: NEVIRAPINE
     Indication: HIV INFECTION
     Dosage: 400 MILLIGRAM, QD (PER DAY)

REACTIONS (4)
  - Drug ineffective [Unknown]
  - Unintended pregnancy [Not Recovered/Not Resolved]
  - Pregnancy on oral contraceptive [Not Recovered/Not Resolved]
  - Drug interaction [Unknown]

NARRATIVE: CASE EVENT DATE: 202002
